FAERS Safety Report 21092084 (Version 1)
Quarter: 2022Q3

REPORT INFORMATION
  Report Type: Spontaneous
  Country: US (occurrence: US)
  Receive Date: 20220718
  Receipt Date: 20220718
  Transmission Date: 20221027
  Serious: Yes (Hospitalization, Other)
  Sender: FDA-Public Use
  Company Number: US-NOVARTISPH-NVSC2022US159657

PATIENT
  Age: 59 Year
  Sex: Male

DRUGS (3)
  1. OXALIPLATIN [Suspect]
     Active Substance: OXALIPLATIN
     Indication: Immune tolerance induction
     Dosage: 10 ML OF BAG 1 (1 PERCENT OF THE TOTAL DOSE) WAS INFUSED OVER THE FIRST HOUR, FOLLOWED BY THE REMAIN
     Route: 041
  2. OXALIPLATIN [Suspect]
     Active Substance: OXALIPLATIN
     Dosage: BAG 2, CONTAINING 90 PERCENT OF THE TOTAL DOSE IN 250 ML OVER 3 HOURS
     Route: 041
  3. DIPHENHYDRAMINE [Concomitant]
     Active Substance: DIPHENHYDRAMINE
     Indication: Product used for unknown indication
     Dosage: 25 MG WAS ADMINISTERED PRIOR TO BAG 2
     Route: 042

REACTIONS (3)
  - Haemolysis [Unknown]
  - Immune thrombocytopenia [Unknown]
  - Product use in unapproved indication [Unknown]
